FAERS Safety Report 16799255 (Version 2)
Quarter: 2019Q3

REPORT INFORMATION
  Report Type: Spontaneous
  Country: US (occurrence: US)
  Receive Date: 20190912
  Receipt Date: 20190916
  Transmission Date: 20191005
  Serious: Yes (Hospitalization, Other)
  Sender: FDA-Public Use
  Company Number: US-PFIZER INC-2019391369

PATIENT
  Age: 58 Year
  Sex: Female
  Weight: 78.5 kg

DRUGS (5)
  1. XANAX [Suspect]
     Active Substance: ALPRAZOLAM
     Dosage: 0.5 MG, 3X/DAY
     Route: 048
  2. BUPROPION. [Concomitant]
     Active Substance: BUPROPION
     Dosage: UNK
  3. XANAX [Suspect]
     Active Substance: ALPRAZOLAM
     Dosage: 1.5 MG, DAILY
     Dates: start: 201908
  4. AMLODIPINE BESILATE [Concomitant]
     Active Substance: AMLODIPINE BESYLATE
     Indication: BLOOD PRESSURE ABNORMAL
     Dosage: UNK
  5. XANAX [Suspect]
     Active Substance: ALPRAZOLAM
     Indication: ANXIETY
     Dosage: 4 MG, DAILY

REACTIONS (9)
  - Adrenal mass [Recovered/Resolved]
  - Fall [Unknown]
  - Thoracic vertebral fracture [Unknown]
  - Drug ineffective [Unknown]
  - Dental caries [Unknown]
  - Intervertebral disc compression [Unknown]
  - Neuropathy peripheral [Unknown]
  - Spinal pain [Unknown]
  - Bursa disorder [Unknown]

NARRATIVE: CASE EVENT DATE: 2019
